FAERS Safety Report 10572912 (Version 1)
Quarter: 2014Q4

REPORT INFORMATION
  Report Type: Spontaneous
  Country: US (occurrence: None)
  Receive Date: 20141106
  Receipt Date: 20141106
  Transmission Date: 20150529
  Serious: Yes (Death, Hospitalization)
  Sender: FDA-Public Use
  Company Number: COR_00139_2014

PATIENT
  Age: 72 Year
  Sex: Female

DRUGS (2)
  1. ETOPOSIDE. [Suspect]
     Active Substance: ETOPOSIDE
     Indication: LUNG CANCER METASTATIC
     Dosage: (DF)
  2. CARBOPLATIN. [Suspect]
     Active Substance: CARBOPLATIN
     Indication: LUNG CANCER METASTATIC
     Dosage: (DF)

REACTIONS (17)
  - Asthenia [None]
  - Fall [None]
  - Chest pain [None]
  - Heart rate increased [None]
  - Blood potassium increased [None]
  - Blood pressure decreased [None]
  - Blood bilirubin increased [None]
  - Electrolyte imbalance [None]
  - Lethargy [None]
  - Oedema [None]
  - Aspartate aminotransferase increased [None]
  - Blood creatinine increased [None]
  - Alanine aminotransferase increased [None]
  - Blood sodium decreased [None]
  - Blood alkaline phosphatase increased [None]
  - Unresponsive to stimuli [None]
  - Tumour lysis syndrome [None]
